FAERS Safety Report 12299128 (Version 1)
Quarter: 2016Q2

REPORT INFORMATION
  Report Type: Spontaneous
  Country: US (occurrence: None)
  Receive Date: 20160422
  Receipt Date: 20160422
  Transmission Date: 20160815
  Serious: Yes (Other)
  Sender: FDA-Public Use
  Company Number: None

PATIENT
  Age: 56 Year
  Sex: Female
  Weight: 60.33 kg

DRUGS (15)
  1. SAVELLA [Suspect]
     Active Substance: MILNACIPRAN HYDROCHLORIDE
     Indication: FIBROMYALGIA
     Dosage: 1 TABLET(S) TWICE A DAY TAKEN BY MOUTH
     Route: 048
     Dates: start: 20150904, end: 20160209
  2. RANITIDINE. [Concomitant]
     Active Substance: RANITIDINE
  3. FENOFIBRATE. [Concomitant]
     Active Substance: FENOFIBRATE
  4. MELOXICAM. [Concomitant]
     Active Substance: MELOXICAM
  5. CURAMED SUPPLEMENT [Concomitant]
  6. COQ10 [Concomitant]
     Active Substance: UBIDECARENONE
  7. PYCOGENOL [Concomitant]
  8. SAVELLA [Suspect]
     Active Substance: MILNACIPRAN HYDROCHLORIDE
     Indication: BONE PAIN
     Dosage: 1 TABLET(S) TWICE A DAY TAKEN BY MOUTH
     Route: 048
     Dates: start: 20150904, end: 20160209
  9. FOLIC ACID. [Concomitant]
     Active Substance: FOLIC ACID
  10. ENBREL [Concomitant]
     Active Substance: ETANERCEPT
  11. METHOTREXATE [Concomitant]
     Active Substance: METHOTREXATE
  12. LEVOTHYROXINE. [Concomitant]
     Active Substance: LEVOTHYROXINE
  13. DIAZEPAM. [Concomitant]
     Active Substance: DIAZEPAM
  14. ADVAIR HFA [Concomitant]
     Active Substance: FLUTICASONE PROPIONATE\SALMETEROL XINAFOATE
  15. NORCO [Concomitant]
     Active Substance: ACETAMINOPHEN\HYDROCODONE BITARTRATE

REACTIONS (14)
  - Mood swings [None]
  - Anxiety [None]
  - Impulsive behaviour [None]
  - Hypersomnia [None]
  - Hot flush [None]
  - Palpitations [None]
  - Abdominal distension [None]
  - Homicidal ideation [None]
  - Depression [None]
  - Crying [None]
  - Nervousness [None]
  - Dry mouth [None]
  - Peripheral swelling [None]
  - Suicidal ideation [None]

NARRATIVE: CASE EVENT DATE: 20160106
